FAERS Safety Report 5099473-3 (Version None)
Quarter: 2006Q3

REPORT INFORMATION
  Report Type: 
  Country: None (occurrence: None)
  Receive Date: 20060906
  Receipt Date: 20060822
  Transmission Date: 20061208
  Serious: Yes (Death)
  Sender: FDA-Public Use
  Company Number: 066

PATIENT
  Sex: Male

DRUGS (6)
  1. FAZACLO ODT [Suspect]
     Indication: SCHIZOAFFECTIVE DISORDER
     Dosage: 100MG PO QHS
     Route: 048
     Dates: start: 20051101, end: 20060731
  2. ZONEGRAN [Concomitant]
  3. MAGNESIUM OXIDE [Concomitant]
  4. K-TAB [Concomitant]
  5. CITRACAL+D [Concomitant]
  6. REGULAR INSULIN [Concomitant]

REACTIONS (1)
  - CARDIAC ARREST [None]
